FAERS Safety Report 13276735 (Version 1)
Quarter: 2017Q1

REPORT INFORMATION
  Report Type: Spontaneous
  Country: US (occurrence: US)
  Receive Date: 20170228
  Receipt Date: 20170228
  Transmission Date: 20170428
  Serious: No
  Sender: FDA-Public Use
  Company Number: US-009507513-1702USA009557

PATIENT
  Sex: Female

DRUGS (1)
  1. COZAAR [Suspect]
     Active Substance: LOSARTAN POTASSIUM
     Indication: HYPERTENSION
     Dosage: 1 TABLET, ONCE
     Route: 048
     Dates: start: 20170201, end: 20170201

REACTIONS (2)
  - Sneezing [Unknown]
  - Rash generalised [Unknown]

NARRATIVE: CASE EVENT DATE: 20170201
